FAERS Safety Report 22300146 (Version 1)
Quarter: 2023Q2

REPORT INFORMATION
  Report Type: Report from Study
  Country: BR (occurrence: None)
  Receive Date: 20230509
  Receipt Date: 20230509
  Transmission Date: 20230722
  Serious: Yes (Hospitalization)
  Sender: FDA-Public Use
  Company Number: BR-Merck Healthcare KGaA-9161875

PATIENT
  Age: 27 Year
  Sex: Female

DRUGS (3)
  1. INTERFERON BETA-1A [Suspect]
     Active Substance: INTERFERON BETA-1A
     Indication: Multiple sclerosis
     Route: 058
     Dates: start: 20190707
  2. HUMAN IMMUNOGLOBULIN G [Concomitant]
     Active Substance: HUMAN IMMUNOGLOBULIN G
     Indication: Multiple sclerosis relapse prophylaxis
     Dosage: AT THE DOSE OF 0.4 GRAMS /PER KILOGRAM / DAY FOR 5 DAYS
     Dates: start: 20201226, end: 20201230
  3. NACTALI [Concomitant]
     Indication: Contraception
     Dates: start: 2014

REACTIONS (7)
  - Caesarean section [Recovered/Resolved]
  - Injection site discomfort [Unknown]
  - Injection site pain [Unknown]
  - Skin striae [Unknown]
  - Breast feeding [Not Recovered/Not Resolved]
  - Live birth [Recovered/Resolved]
  - Maternal exposure during pregnancy [Recovered/Resolved]

NARRATIVE: CASE EVENT DATE: 20200401
